FAERS Safety Report 25755887 (Version 2)
Quarter: 2025Q3

REPORT INFORMATION
  Report Type: Spontaneous
  Country: US (occurrence: US)
  Receive Date: 20250903
  Receipt Date: 20250912
  Transmission Date: 20251021
  Serious: No
  Sender: VERTEX
  Company Number: US-VERTEX PHARMACEUTICALS-2025-014250

PATIENT
  Age: 76 Year
  Sex: Female

DRUGS (2)
  1. ALYFTREK [Suspect]
     Active Substance: DEUTIVACAFTOR\TEZACAFTOR\VANZACAFTOR
     Indication: Cystic fibrosis
     Dosage: 1 TABLET (10MG VANZACAFTOR/50MG TEZACAFTOR/125MG DEUTIVACAFTOR), DAILY
     Route: 048
     Dates: start: 20250711, end: 2025
  2. ALYFTREK [Suspect]
     Active Substance: DEUTIVACAFTOR\TEZACAFTOR\VANZACAFTOR
     Dosage: HALF TABLET (10MG VANZACAFTOR/50MG TEZACAFTOR/125MG DEUTIVACAFTOR), DAILY
     Route: 048
     Dates: start: 20250808, end: 20250817

REACTIONS (1)
  - Clostridium difficile colitis [Recovered/Resolved]

NARRATIVE: CASE EVENT DATE: 20250701
